FAERS Safety Report 9276763 (Version 5)
Quarter: 2013Q3

REPORT INFORMATION
  Report Type: Spontaneous
  Country: US (occurrence: None)
  Receive Date: 20130501
  Receipt Date: 20130828
  Transmission Date: 20140515
  Serious: Yes (Other)
  Sender: FDA-Public Use
  Company Number: JPI-P-031391

PATIENT
  Age: 61 Year
  Sex: Female

DRUGS (1)
  1. XYREM (500 MILLIGRAM/MILLILITERS, SOLUTION) (SODIUM OXYBATE) [Suspect]
     Indication: NARCOLEPSY
     Dosage: (2.25 GM, 2 IN 1 D) 4.5 GM, ORAL
     Route: 048
     Dates: start: 20060309

REACTIONS (7)
  - Physical assault [None]
  - Victim of spousal abuse [None]
  - Feeling abnormal [None]
  - Victim of crime [None]
  - Stress [None]
  - Somnolence [None]
  - Panic attack [None]
